FAERS Safety Report 19762003 (Version 1)
Quarter: 2021Q3

REPORT INFORMATION
  Report Type: Spontaneous
  Country: ES (occurrence: ES)
  Receive Date: 20210827
  Receipt Date: 20210827
  Transmission Date: 20211014
  Serious: Yes (Death, Hospitalization)
  Sender: FDA-Public Use
  Company Number: NVSC2021ES193040

PATIENT
  Age: 76 Year
  Sex: Male

DRUGS (4)
  1. HALOPERIDOL. [Interacting]
     Active Substance: HALOPERIDOL
     Indication: ACUTE PSYCHOSIS
     Dosage: 35 DRP (1/12 ML), QD
     Route: 048
     Dates: start: 20210226, end: 20210331
  2. QUETIAPINA SANDOZ [Suspect]
     Active Substance: QUETIAPINE FUMARATE
     Indication: ACUTE PSYCHOSIS
     Dosage: 300 MG, QD
     Route: 048
     Dates: start: 20210301, end: 20210407
  3. LITIO CARBONATO [Interacting]
     Active Substance: LITHIUM CARBONATE
     Indication: ACUTE PSYCHOSIS
     Dosage: 200 UG, Q8H
     Route: 048
     Dates: start: 20210324, end: 20210407
  4. HALOPERIDOL. [Interacting]
     Active Substance: HALOPERIDOL
     Dosage: 30 DRP (1/12 ML), QD
     Route: 048
     Dates: start: 20210331, end: 20210407

REACTIONS (1)
  - Neuroleptic malignant syndrome [Fatal]

NARRATIVE: CASE EVENT DATE: 20210408
